FAERS Safety Report 5687841-8 (Version None)
Quarter: 2008Q1

REPORT INFORMATION
  Report Type: 
  Country: None (occurrence: None)
  Receive Date: 20080328
  Receipt Date: 20061212
  Transmission Date: 20080703
  Serious: Yes (Other)
  Sender: FDA-Public Use
  Company Number: US-BAYER-US-2006-036181

PATIENT
  Age: 23 Year
  Sex: Female
  Weight: 66 kg

DRUGS (2)
  1. MIRENA [Suspect]
     Indication: CONTRACEPTION
     Route: 015
     Dates: start: 20061024, end: 20061117
  2. ANTIDEPRESSANTS [Concomitant]
     Indication: DEPRESSION

REACTIONS (1)
  - IUD MIGRATION [None]
